FAERS Safety Report 5207643-6 (Version None)
Quarter: 2007Q1

REPORT INFORMATION
  Report Type: 
  Country: None (occurrence: None)
  Receive Date: 20070112
  Receipt Date: 20070105
  Transmission Date: 20070707
  Serious: Yes (Hospitalization, Other)
  Sender: FDA-Public Use
  Company Number: JP-PFIZER INC-2006144692

PATIENT
  Sex: Male

DRUGS (18)
  1. LIPITOR [Suspect]
     Indication: ANGINA PECTORIS
     Dosage: DAILY DOSE:10MG-FREQ:DAILY
     Route: 048
     Dates: start: 20061101, end: 20061114
  2. LIPITOR [Suspect]
     Indication: MYOCARDIAL INFARCTION
  3. PANALDINE [Suspect]
     Indication: ANGINA PECTORIS
     Dosage: DAILY DOSE:200MG-FREQ:DAILY
     Route: 048
     Dates: start: 20061101, end: 20061114
  4. PANALDINE [Suspect]
     Indication: MYOCARDIAL INFARCTION
  5. ITOROL [Suspect]
     Indication: ANGINA PECTORIS
     Dosage: DAILY DOSE:40MG-FREQ:DAILY
     Route: 048
     Dates: start: 20060914, end: 20061114
  6. ITOROL [Suspect]
     Indication: MYOCARDIAL INFARCTION
  7. ARTIST [Concomitant]
     Indication: ANGINA PECTORIS
     Dosage: DAILY DOSE:5MG-FREQ:DAILY
     Route: 048
  8. ARTIST [Concomitant]
     Indication: MYOCARDIAL INFARCTION
  9. WARFARIN SODIUM [Concomitant]
     Indication: ANGINA PECTORIS
     Dosage: DAILY DOSE:.5MG-FREQ:DAILY
     Route: 048
  10. WARFARIN SODIUM [Concomitant]
     Indication: MYOCARDIAL INFARCTION
  11. BUFFERIN [Concomitant]
     Indication: ANGINA PECTORIS
     Dosage: TEXT:1 DF-FREQ:DAILY
     Route: 048
  12. BUFFERIN [Concomitant]
     Indication: MYOCARDIAL INFARCTION
  13. ALL OTHER THERAPEUTIC PRODUCTS [Concomitant]
     Indication: ANGINA PECTORIS
     Dosage: FREQ:DAILY
     Route: 048
  14. ALL OTHER THERAPEUTIC PRODUCTS [Concomitant]
     Indication: MYOCARDIAL INFARCTION
  15. MAGNESIUM CARBONATE [Concomitant]
     Indication: ANGINA PECTORIS
     Dosage: FREQ:DAILY
     Route: 048
  16. MAGNESIUM CARBONATE [Concomitant]
     Indication: MYOCARDIAL INFARCTION
  17. PARAMIDIN [Concomitant]
     Indication: ANGINA PECTORIS
     Dosage: DAILY DOSE:300MG-FREQ:DAILY
     Route: 048
  18. PARAMIDIN [Concomitant]
     Indication: MYOCARDIAL INFARCTION

REACTIONS (2)
  - CORONARY ANGIOPLASTY [None]
  - DRUG ERUPTION [None]
